FAERS Safety Report 7223840-2 (Version None)
Quarter: 2011Q1

REPORT INFORMATION
  Report Type: 
  Country: None (occurrence: None)
  Receive Date: 20110112
  Receipt Date: 20101227
  Transmission Date: 20110831
  Serious: No
  Sender: FDA-Public Use
  Company Number: US-ALLERGAN-1016787US

PATIENT
  Age: 89 Year
  Sex: Female

DRUGS (5)
  1. AZOPT [Concomitant]
     Dosage: UNK
  2. OTHER DRY EYE DROPS (UNSPECIFIED) [Concomitant]
  3. TIMOLOL MALEATE [Concomitant]
     Dosage: UNK
  4. RESTASIS [Suspect]
     Indication: DRY EYE
     Dosage: 1 GTT, BID
     Dates: start: 20101221
  5. TRAVATAN [Concomitant]
     Dosage: UNK

REACTIONS (1)
  - EYE IRRITATION [None]
